FAERS Safety Report 13165515 (Version 1)
Quarter: 2017Q1

REPORT INFORMATION
  Report Type: Spontaneous
  Country: CA (occurrence: CA)
  Receive Date: 20170131
  Receipt Date: 20170131
  Transmission Date: 20170428
  Serious: Yes (Other)
  Sender: FDA-Public Use
  Company Number: CA-TEVA-734174ACC

PATIENT
  Age: 25 Year
  Sex: Female
  Weight: 59.02 kg

DRUGS (1)
  1. NOVO-FLUCONAZOLE [Suspect]
     Active Substance: FLUCONAZOLE
     Indication: VULVOVAGINAL CANDIDIASIS
     Dosage: 150 MILLIGRAM DAILY;
     Route: 048

REACTIONS (4)
  - Oral herpes [Recovered/Resolved]
  - Hypersensitivity [Recovered/Resolved]
  - Rash [Recovered/Resolved]
  - Lip swelling [Recovered/Resolved]
